FAERS Safety Report 5011571-9 (Version None)
Quarter: 2006Q2

REPORT INFORMATION
  Report Type: 
  Country: None (occurrence: None)
  Receive Date: 20060524
  Receipt Date: 20060519
  Transmission Date: 20061013
  Serious: Yes (Other)
  Sender: FDA-Public Use
  Company Number: 007525

PATIENT
  Age: 59 Year
  Sex: Female

DRUGS (6)
  1. AYGESTIN [Suspect]
     Dosage: ORAL
     Route: 048
     Dates: start: 19910101, end: 20030101
  2. ESTRADIOL [Suspect]
     Dosage: ORAL
     Route: 048
     Dates: start: 19910101, end: 20030101
  3. ESTRACE [Suspect]
     Dosage: ORAL
     Route: 048
     Dates: start: 19910101, end: 20030101
  4. ESTRATEST [Suspect]
     Dosage: ORAL
     Route: 048
     Dates: start: 19910101, end: 20030101
  5. FEMHRT [Suspect]
     Dosage: ORAL
     Route: 048
     Dates: start: 19910101, end: 20030101
  6. PROVERA [Suspect]
     Dosage: ORAL
     Route: 048
     Dates: start: 19910101, end: 20030101

REACTIONS (2)
  - BREAST CANCER FEMALE [None]
  - OESTROGEN RECEPTOR ASSAY POSITIVE [None]
